FAERS Safety Report 19279605 (Version 1)
Quarter: 2021Q2

REPORT INFORMATION
  Report Type: Spontaneous
  Country: US (occurrence: US)
  Receive Date: 20210520
  Receipt Date: 20210520
  Transmission Date: 20210717
  Serious: Yes (Hospitalization, Other)
  Sender: FDA-Public Use
  Company Number: US-AMNEAL PHARMACEUTICALS-2021-AMRX-01790

PATIENT
  Sex: Male

DRUGS (1)
  1. METHITEST [Suspect]
     Active Substance: METHYLTESTOSTERONE
     Indication: HORMONE REPLACEMENT THERAPY
     Dosage: 200 MILLIGRAM, 2 /MONTH
     Route: 030

REACTIONS (2)
  - Cerebrospinal fluid leakage [Recovered/Resolved]
  - Idiopathic intracranial hypertension [Recovered/Resolved]
